FAERS Safety Report 18676608 (Version 1)
Quarter: 2020Q4

REPORT INFORMATION
  Report Type: Spontaneous
  Country: US (occurrence: US)
  Receive Date: 20201229
  Receipt Date: 20201229
  Transmission Date: 20210114
  Serious: Yes (Hospitalization)
  Sender: FDA-Public Use
  Company Number: None

PATIENT
  Age: 67 Year
  Sex: Female
  Weight: 86.7 kg

DRUGS (22)
  1. BAMLANIVIMAB. [Suspect]
     Active Substance: BAMLANIVIMAB
     Indication: COVID-19
     Dosage: ?          OTHER FREQUENCY:ONCE;?
     Route: 041
  2. OXYCODONE-PERCOCET [Concomitant]
  3. FAMOTIDINE. [Concomitant]
     Active Substance: FAMOTIDINE
  4. ONDANSETRON [Concomitant]
     Active Substance: ONDANSETRON
  5. POTASSIUM CHLORIDE. [Concomitant]
     Active Substance: POTASSIUM CHLORIDE
  6. TORSEMIDE. [Concomitant]
     Active Substance: TORSEMIDE
  7. PANTOPRAZOLE [Concomitant]
     Active Substance: PANTOPRAZOLE
  8. FUROSEMIDE. [Concomitant]
     Active Substance: FUROSEMIDE
  9. INSULIN (GLARGINE, REGULAR AND LISPRO) [Concomitant]
  10. MAG SULFATE [Concomitant]
  11. POTASSIUM PHOSPHATE [Concomitant]
     Active Substance: POTASSIUM PHOSPHATE
  12. DEXTROSE. [Concomitant]
     Active Substance: DEXTROSE
  13. ASPIRIN. [Concomitant]
     Active Substance: ASPIRIN
  14. LOSARTAN. [Concomitant]
     Active Substance: LOSARTAN
  15. METOPROLOL TARTRATE. [Concomitant]
     Active Substance: METOPROLOL TARTRATE
  16. PRAVASTATIN. [Concomitant]
     Active Substance: PRAVASTATIN
  17. SPIRONOLACTONE. [Concomitant]
     Active Substance: SPIRONOLACTONE
  18. ENOXAPARIN [Concomitant]
     Active Substance: ENOXAPARIN
  19. GABAPENTIN. [Concomitant]
     Active Substance: GABAPENTIN
  20. ALBUTEROL. [Concomitant]
     Active Substance: ALBUTEROL
     Dates: start: 20201223
  21. CARVEDILOL. [Concomitant]
     Active Substance: CARVEDILOL
  22. REMDESIVIR. [Concomitant]
     Active Substance: REMDESIVIR
     Dates: start: 20201227

REACTIONS (3)
  - Pulmonary congestion [None]
  - Dyspnoea exertional [None]
  - Diabetic ketoacidosis [None]

NARRATIVE: CASE EVENT DATE: 20201223
